FAERS Safety Report 10215424 (Version 3)
Quarter: 2014Q3

REPORT INFORMATION
  Report Type: Report from Study
  Country: US (occurrence: US)
  Receive Date: 20140604
  Receipt Date: 20140711
  Transmission Date: 20150326
  Serious: Yes (Hospitalization)
  Sender: FDA-Public Use
  Company Number: US-ROCHE-1412236

PATIENT
  Age: 72 Year
  Sex: Female
  Weight: 75.2 kg

DRUGS (2)
  1. VISMODEGIB [Suspect]
     Active Substance: VISMODEGIB
     Indication: PANCREATIC CARCINOMA
     Dosage: DATE OF MOST RECENT DOSE PRIOR TO SAE ONSET: 10/MAY/2014
     Route: 048
     Dates: start: 20140510, end: 20140606
  2. SIROLIMUS. [Suspect]
     Active Substance: SIROLIMUS
     Indication: PANCREATIC CARCINOMA
     Dosage: DATE OF MOST RECENT DOSE PRIOR TO SAE ONSET: 10/MAY/2014
     Route: 048
     Dates: start: 20140510, end: 20140606

REACTIONS (2)
  - Abdominal pain [Recovered/Resolved]
  - Back pain [Recovered/Resolved]

NARRATIVE: CASE EVENT DATE: 20140513
